FAERS Safety Report 23953402 (Version 1)
Quarter: 2024Q2

REPORT INFORMATION
  Report Type: Spontaneous
  Country: CN (occurrence: CN)
  Receive Date: 20240608
  Receipt Date: 20240608
  Transmission Date: 20240716
  Serious: Yes (Hospitalization)
  Sender: FDA-Public Use
  Company Number: CN-ABBVIE-5788134

PATIENT
  Age: 50 Year
  Sex: Female
  Weight: 70 kg

DRUGS (4)
  1. VENETOCLAX [Suspect]
     Active Substance: VENETOCLAX
     Indication: Leukaemia
     Dosage: 200 MG ONCE A DAY BY MOUTH
     Route: 048
     Dates: start: 20240512, end: 20240518
  2. DECITABINE [Suspect]
     Active Substance: DECITABINE
     Indication: Leukaemia
     Dosage: TIME INTERVAL: 0.33333333 DAYS: 38 MG Q8H IVGTT
     Route: 041
     Dates: start: 20240513, end: 20240515
  3. SODIUM CHLORIDE [Concomitant]
     Active Substance: SODIUM CHLORIDE
     Indication: Vehicle solution use
     Dosage: TIME INTERVAL: 0.33333333 DAYS
     Route: 041
     Dates: start: 20240513, end: 20240515
  4. GRANULOCYTE COLONY-STIMULATING FACTOR NOS [Concomitant]
     Active Substance: GRANULOCYTE COLONY-STIMULATING FACTOR NOS
     Indication: Product used for unknown indication
     Dosage: 300 UG QD IH
     Dates: start: 20240531, end: 20240603

REACTIONS (2)
  - Acute myeloid leukaemia [Unknown]
  - Myelosuppression [Recovering/Resolving]

NARRATIVE: CASE EVENT DATE: 20240531
